FAERS Safety Report 5692990-4 (Version None)
Quarter: 2008Q2

REPORT INFORMATION
  Report Type: 
  Country: None (occurrence: None)
  Receive Date: 20080401
  Receipt Date: 20080401
  Transmission Date: 20081010
  Serious: Yes (Other)
  Sender: FDA-Public Use
  Company Number: None

PATIENT
  Age: 72 Year
  Sex: Female
  Weight: 56.246 kg

DRUGS (1)
  1. AMLODIPINE BESYLATE [Suspect]
     Indication: HYPERTENSION
     Dosage: 1 TABLET ONCE A DAY PO
     Route: 048
     Dates: start: 20080114, end: 20080130

REACTIONS (4)
  - NERVOUSNESS [None]
  - PRURITUS GENERALISED [None]
  - SOMNOLENCE [None]
  - SUICIDAL IDEATION [None]
